FAERS Safety Report 18130870 (Version 2)
Quarter: 2020Q3

REPORT INFORMATION
  Report Type: Spontaneous
  Country: US (occurrence: US)
  Receive Date: 20200810
  Receipt Date: 20200814
  Transmission Date: 20201103
  Serious: No
  Sender: FDA-Public Use
  Company Number: US-PFIZER INC-2020303929

PATIENT
  Age: 54 Year
  Sex: Female

DRUGS (1)
  1. PREMARIN [Suspect]
     Active Substance: ESTROGENS, CONJUGATED
     Indication: VAGINAL DISORDER
     Dosage: 0.625 MG, 2X/WEEK
     Route: 067

REACTIONS (6)
  - Insomnia [Unknown]
  - Vulvovaginal burning sensation [Unknown]
  - Abdominal distension [Unknown]
  - Weight increased [Unknown]
  - Expired product administered [Unknown]
  - Mood swings [Unknown]
